FAERS Safety Report 7056034-4 (Version None)
Quarter: 2010Q4

REPORT INFORMATION
  Report Type: 
  Country: None (occurrence: None)
  Receive Date: 20101021
  Receipt Date: 20101012
  Transmission Date: 20110411
  Serious: Yes (Hospitalization)
  Sender: FDA-Public Use
  Company Number: B0669861A

PATIENT
  Sex: Female

DRUGS (11)
  1. CARVEDILOL [Suspect]
     Indication: PRODUCT USED FOR UNKNOWN INDICATION
     Dosage: 10MG PER DAY
     Route: 065
     Dates: start: 20100724
  2. BLINDED STUDY MEDICATION [Suspect]
     Indication: GLIOBLASTOMA
     Route: 042
     Dates: start: 20100408
  3. TEMOZOLOMIDE [Suspect]
     Indication: GLIOBLASTOMA
     Dosage: 75MGM2 PER DAY
     Route: 048
     Dates: start: 20100408, end: 20101002
  4. AMLODIPINE [Suspect]
     Indication: PRODUCT USED FOR UNKNOWN INDICATION
     Dosage: 10ML PER DAY
     Dates: start: 20100723, end: 20100818
  5. ENALAPRIL MALEATE [Suspect]
     Indication: PRODUCT USED FOR UNKNOWN INDICATION
     Dosage: 10MG PER DAY
     Dates: start: 20100723
  6. SULPIRIDE [Suspect]
     Indication: PRODUCT USED FOR UNKNOWN INDICATION
     Dosage: 150MG PER DAY
     Route: 065
     Dates: start: 19980901
  7. LOXOPROFEN SODIUM [Suspect]
     Indication: PRODUCT USED FOR UNKNOWN INDICATION
     Dosage: 180MG PER DAY
     Dates: start: 20100723
  8. KETOPROFEN [Concomitant]
     Dates: start: 20100523
  9. FERROUS CITRATE [Concomitant]
     Dates: start: 20100331
  10. OLMESARTAN MEDOXOMIL [Concomitant]
     Dates: start: 20100312
  11. ALPRAZOLAM [Concomitant]

REACTIONS (1)
  - MUSCULAR WEAKNESS [None]
